FAERS Safety Report 7387645-4 (Version None)
Quarter: 2011Q1

REPORT INFORMATION
  Report Type: 
  Country: None (occurrence: None)
  Receive Date: 20110331
  Receipt Date: 20110321
  Transmission Date: 20110831
  Serious: Yes (Other)
  Sender: FDA-Public Use
  Company Number: FR-AMGEN-FRASP2010004710

PATIENT
  Age: 78 Year
  Sex: Male

DRUGS (1)
  1. ARANESP [Suspect]
     Indication: RENAL FAILURE CHRONIC
     Dosage: 40 A?G, QWK
     Route: 058
     Dates: start: 20100818, end: 20100929

REACTIONS (4)
  - HEPATIC ENZYME ABNORMAL [None]
  - PRURITUS [None]
  - URTICARIA [None]
  - EOSINOPHILIA [None]
